FAERS Safety Report 17530438 (Version 1)
Quarter: 2020Q1

REPORT INFORMATION
  Report Type: Report from Study
  Country: OM (occurrence: OM)
  Receive Date: 20200312
  Receipt Date: 20200312
  Transmission Date: 20200409
  Serious: Yes (Hospitalization, Other)
  Sender: FDA-Public Use
  Company Number: OM-ROCHE-2561965

PATIENT

DRUGS (6)
  1. FLUDARABINE [Suspect]
     Active Substance: FLUDARABINE PHOSPHATE
     Indication: IMMUNOSUPPRESSION
     Dosage: DAY 07 TO DAY 03
     Route: 065
  2. SULFAMETHOXAZOLE/TRIMETHOPRIM [Suspect]
     Active Substance: SULFAMETHOXAZOLE\TRIMETHOPRIM
     Indication: ANTIFUNGAL PROPHYLAXIS
     Route: 065
  3. THIOTEPA. [Suspect]
     Active Substance: THIOTEPA
     Indication: IMMUNOSUPPRESSION
     Dosage: DAY 2
     Route: 065
  4. ANTITHYMOCYTE IMMUNOGLOBULIN (RABBIT) [Suspect]
     Active Substance: LAPINE T-LYMPHOCYTE IMMUNE GLOBULIN
     Indication: IMMUNOSUPPRESSION
     Dosage: (DAY-6 TO -3)
     Route: 065
  5. RITUXIMAB. [Suspect]
     Active Substance: RITUXIMAB
     Indication: IMMUNOSUPPRESSION
     Dosage: DAY 01.
     Route: 065
  6. TREOSULFAN [Suspect]
     Active Substance: TREOSULFAN
     Indication: IMMUNOSUPPRESSION
     Dosage: (DAY -6 TO -4),
     Route: 065

REACTIONS (21)
  - Acute lung injury [Unknown]
  - Pneumocystis jirovecii pneumonia [Unknown]
  - Aspergillus infection [Unknown]
  - Cytomegalovirus enteritis [Unknown]
  - Drug intolerance [Unknown]
  - Left ventricular hypertrophy [Unknown]
  - Cardiac failure [Unknown]
  - Cytomegalovirus chorioretinitis [Unknown]
  - Vascular device infection [Unknown]
  - Left ventricle outflow tract obstruction [Unknown]
  - Pulmonary oedema [Unknown]
  - Gastrointestinal haemorrhage [Unknown]
  - Bronchiectasis [Unknown]
  - Parvovirus infection [Unknown]
  - Cytomegalovirus viraemia [Unknown]
  - Hypertension [Unknown]
  - Bronchiolitis [Unknown]
  - Systemic candida [Unknown]
  - Gastroenteritis norovirus [Unknown]
  - Venoocclusive disease [Unknown]
  - Viraemia [Unknown]
